FAERS Safety Report 9246063 (Version 1)
Quarter: 2013Q2

REPORT INFORMATION
  Report Type: Report from Study
  Country: BR (occurrence: BR)
  Receive Date: 20130422
  Receipt Date: 20130422
  Transmission Date: 20140414
  Serious: Yes (Death, Hospitalization, Other)
  Sender: FDA-Public Use
  Company Number: PHHY2013BR038715

PATIENT
  Age: 60 Year
  Sex: Male
  Weight: 85 kg

DRUGS (7)
  1. ACLASTA [Suspect]
     Indication: OSTEOPOROSIS
     Dosage: 5 MG, 1APPLICATION
     Route: 042
     Dates: start: 20130214
  2. SIMVASTATIN [Concomitant]
     Indication: CAROTID ARTERY DISEASE
     Dosage: 1 DF, UNK
     Route: 048
  3. MIFLASONE [Concomitant]
     Indication: RESPIRATORY FAILURE
     Dosage: (2 INHALATION) DAILY
  4. SYMBICORT [Concomitant]
     Indication: LUNG DISORDER
     Dosage: 2 INHALATIONS DAILY
  5. DIGOXIN [Concomitant]
     Indication: CARDIAC DISORDER
     Dosage: 1 DF, UNK
     Route: 048
  6. BEROTEC [Concomitant]
     Indication: LUNG DISORDER
     Dosage: 3 INHALATIONS DAILY
  7. ATROVENT [Concomitant]
     Indication: LUNG DISORDER
     Dosage: 3 INHALATIONS DAILY

REACTIONS (5)
  - Cardio-respiratory arrest [Fatal]
  - Lung neoplasm malignant [Not Recovered/Not Resolved]
  - Dyspnoea [Not Recovered/Not Resolved]
  - Pleural effusion [Not Recovered/Not Resolved]
  - Pneumonia [Not Recovered/Not Resolved]
